FAERS Safety Report 5329011-9 (Version None)
Quarter: 2007Q2

REPORT INFORMATION
  Report Type: 
  Country: None (occurrence: None)
  Receive Date: 20070518
  Receipt Date: 20070509
  Transmission Date: 20071010
  Serious: Yes (Death, Hospitalization, Other)
  Sender: FDA-Public Use
  Company Number: US-PFIZER INC-2004117310

PATIENT
  Sex: Female
  Weight: 65.8 kg

DRUGS (19)
  1. NEURONTIN [Suspect]
     Indication: BIPOLAR DISORDER
     Route: 065
  2. NEURONTIN [Suspect]
     Indication: ALCOHOLIC SEIZURE
     Route: 065
  3. NEURONTIN [Suspect]
     Indication: MOVEMENT DISORDER
  4. NEURONTIN [Suspect]
     Indication: PAIN
  5. IBUPROFEN [Suspect]
     Indication: ILL-DEFINED DISORDER
     Route: 048
  6. AMITRIPTYLINE HYDROCHLORIDE [Suspect]
     Indication: ILL-DEFINED DISORDER
     Route: 048
  7. NORTRIPTYLINE HCL [Suspect]
     Indication: ILL-DEFINED DISORDER
     Dosage: TEXT:UNKNOWN-FREQ:UNKNOWN
     Route: 065
  8. VENLAFAXINE HCL [Suspect]
     Indication: ILL-DEFINED DISORDER
     Route: 048
  9. OXYCODONE HCL [Suspect]
     Indication: ILL-DEFINED DISORDER
     Route: 065
  10. BISOPROLOL FUMARATE AND HYDROCHLOROTHIAZIDE [Concomitant]
     Dosage: FREQ:UNKNOWN
     Route: 065
  11. BUSPIRONE HCL [Concomitant]
     Route: 048
  12. VERAPAMIL [Concomitant]
     Route: 048
  13. ALBUTEROL [Concomitant]
     Dosage: FREQ:UNKNOWN
     Route: 055
  14. SUMATRIPTAN SUCCINATE [Concomitant]
     Route: 065
  15. TEMAZEPAM [Concomitant]
     Route: 048
  16. LIDOCAINE [Concomitant]
     Dosage: FREQ:UNKNOWN
     Route: 062
  17. OXAZEPAM [Concomitant]
     Dosage: FREQ:UNKNOWN
     Route: 065
  18. BENZODIAZEPINE DERIVATIVES [Concomitant]
     Dosage: FREQ:UNKNOWN
     Route: 065
  19. OPIOIDS [Concomitant]
     Dosage: FREQ:UNKNOWN
     Route: 065

REACTIONS (14)
  - CARDIAC ARREST [None]
  - COMPLETED SUICIDE [None]
  - CONFUSIONAL STATE [None]
  - CONSCIOUSNESS FLUCTUATING [None]
  - CONTUSION [None]
  - DRUG INEFFECTIVE [None]
  - HOMICIDAL IDEATION [None]
  - INTENTIONAL DRUG MISUSE [None]
  - LOSS OF CONSCIOUSNESS [None]
  - MAJOR DEPRESSION [None]
  - MULTIPLE DRUG OVERDOSE ACCIDENTAL [None]
  - SKIN LACERATION [None]
  - SUICIDAL IDEATION [None]
  - SWELLING [None]
